FAERS Safety Report 13274993 (Version 1)
Quarter: 2017Q1

REPORT INFORMATION
  Report Type: Spontaneous
  Country: US (occurrence: US)
  Receive Date: 20170227
  Receipt Date: 20170227
  Transmission Date: 20170428
  Serious: Yes (Hospitalization)
  Sender: FDA-Public Use
  Company Number: US-VIFOR (INTERNATIONAL) INC.-VIT-2017-02052

PATIENT
  Age: 69 Year
  Sex: Male

DRUGS (8)
  1. KAYEXALATE [Concomitant]
     Active Substance: SODIUM POLYSTYRENE SULFONATE
  2. MAGNESIUM [Concomitant]
     Active Substance: MAGNESIUM
  3. COLECALCIFEROL [Concomitant]
     Active Substance: CHOLECALCIFEROL
  4. TACROLIMUS. [Concomitant]
     Active Substance: TACROLIMUS
  5. TOCOPHEROL [Concomitant]
     Active Substance: TOCOPHEROL
  6. MYCOPHENOLATE MOFETIL. [Concomitant]
     Active Substance: MYCOPHENOLATE MOFETIL
  7. VITAMINS NOS [Concomitant]
     Active Substance: VITAMINS
  8. VELTASSA [Suspect]
     Active Substance: PATIROMER
     Indication: HYPERKALAEMIA
     Route: 048
     Dates: start: 20160830

REACTIONS (2)
  - Dehydration [Unknown]
  - Gait disturbance [Unknown]

NARRATIVE: CASE EVENT DATE: 20170213
